FAERS Safety Report 6655203-2 (Version None)
Quarter: 2010Q1

REPORT INFORMATION
  Report Type: 
  Country: None (occurrence: None)
  Receive Date: 20100324
  Receipt Date: 20100315
  Transmission Date: 20100710
  Serious: Yes (Hospitalization, Other)
  Sender: FDA-Public Use
  Company Number: 2010SP015815

PATIENT
  Sex: Female

DRUGS (1)
  1. NUVARING [Suspect]
     Indication: DRUG USE FOR UNKNOWN INDICATION
     Dates: start: 20040129, end: 20060313

REACTIONS (8)
  - ACUTE MYOCARDIAL INFARCTION [None]
  - CARDIAC ARREST [None]
  - CONVULSION [None]
  - ENCEPHALOPATHY [None]
  - HYPOXIA [None]
  - PULMONARY EMBOLISM [None]
  - RESPIRATORY FAILURE [None]
  - SYNCOPE [None]
